FAERS Safety Report 12145704 (Version 1)
Quarter: 2016Q1

REPORT INFORMATION
  Report Type: Spontaneous
  Country: US (occurrence: None)
  Receive Date: 20160303
  Receipt Date: 20160303
  Transmission Date: 20160526
  Serious: Yes (Hospitalization)
  Sender: FDA-Public Use
  Company Number: None

PATIENT
  Age: 70 Year
  Sex: Male
  Weight: 87.5 kg

DRUGS (3)
  1. METFORMID HYDROCHLORIDE [Concomitant]
     Dates: end: 20150817
  2. TAXOL [Concomitant]
     Active Substance: PACLITAXEL
     Dates: end: 20150727
  3. CARBOPLATIN. [Suspect]
     Active Substance: CARBOPLATIN
     Dates: end: 20150727

REACTIONS (7)
  - Loss of consciousness [None]
  - Pneumothorax [None]
  - Syncope [None]
  - Pleural effusion [None]
  - Compression fracture [None]
  - Head injury [None]
  - Cervical vertebral fracture [None]

NARRATIVE: CASE EVENT DATE: 20160129
